FAERS Safety Report 11891012 (Version 5)
Quarter: 2016Q2

REPORT INFORMATION
  Report Type: Spontaneous
  Country: GB (occurrence: GB)
  Receive Date: 20160106
  Receipt Date: 20160621
  Transmission Date: 20160815
  Serious: Yes (Hospitalization)
  Sender: FDA-Public Use
  Company Number: GB-ACCORD-036745

PATIENT
  Sex: Female

DRUGS (3)
  1. HERCEPTIN [Suspect]
     Active Substance: TRASTUZUMAB
     Indication: PRODUCT USED FOR UNKNOWN INDICATION
     Dosage: INITIALLY STARTED WITH AN UNKNOWN DOSE?RECEIVED 18 CYCLES
     Route: 058
  2. ZOLADEX [Suspect]
     Active Substance: GOSERELIN ACETATE
     Indication: PRODUCT USED FOR UNKNOWN INDICATION
     Route: 065
  3. LETROZOLE. [Suspect]
     Active Substance: LETROZOLE
     Indication: PRODUCT USED FOR UNKNOWN INDICATION
     Route: 065

REACTIONS (24)
  - Fatigue [Recovered/Resolved]
  - Night sweats [Unknown]
  - Pain [Unknown]
  - Oropharyngeal pain [Unknown]
  - Vomiting [Recovered/Resolved]
  - Abdominal pain [Recovered/Resolved]
  - Hot flush [Unknown]
  - Headache [Unknown]
  - Rhinorrhoea [Unknown]
  - Musculoskeletal pain [Unknown]
  - Onychoclasis [Unknown]
  - Decreased activity [Unknown]
  - Nasopharyngitis [Recovered/Resolved]
  - Productive cough [Recovered/Resolved]
  - Influenza like illness [Unknown]
  - Diarrhoea [Recovered/Resolved]
  - Chest pain [Unknown]
  - Joint swelling [Unknown]
  - Hypotension [Recovered/Resolved]
  - Arthralgia [Unknown]
  - Constipation [Unknown]
  - Asthenia [Unknown]
  - Peripheral swelling [Unknown]
  - Body temperature increased [Recovered/Resolved]
